FAERS Safety Report 6339345-7 (Version None)
Quarter: 2009Q3

REPORT INFORMATION
  Report Type: 
  Country: None (occurrence: None)
  Receive Date: 20090903
  Receipt Date: 20090901
  Transmission Date: 20100115
  Serious: Yes (Hospitalization)
  Sender: FDA-Public Use
  Company Number: B0591100A

PATIENT
  Sex: Female
  Weight: 75 kg

DRUGS (2)
  1. TOPOTECAN [Suspect]
     Route: 042
     Dates: start: 20090811
  2. CARBOPLATIN [Suspect]
     Route: 042
     Dates: start: 20090813

REACTIONS (2)
  - ABDOMINAL PAIN [None]
  - GENERAL PHYSICAL HEALTH DETERIORATION [None]
